FAERS Safety Report 8210703-9 (Version None)
Quarter: 2012Q1

REPORT INFORMATION
  Report Type: 
  Country: None (occurrence: None)
  Receive Date: 20120315
  Receipt Date: 20120301
  Transmission Date: 20120608
  Serious: Yes (Death, Life-Threatening, Hospitalization, Other)
  Sender: FDA-Public Use
  Company Number: CN-BRISTOL-MYERS SQUIBB COMPANY-16365041

PATIENT
  Age: 46 Year
  Sex: Male

DRUGS (2)
  1. ERBITUX [Suspect]
     Indication: LUNG ADENOCARCINOMA
     Dosage: 600MG ON 04AUG11 400MG FRM 44AUG-06OCT11 (56D) + 27OCT-02NOV11 (6D) 200MG FRM 10NOV-01DEC11 (21D)
     Route: 042
     Dates: start: 20110804, end: 20111201
  2. DOCETAXEL [Suspect]
     Indication: LUNG ADENOCARCINOMA
     Route: 042
     Dates: start: 20110804

REACTIONS (3)
  - RESPIRATORY FAILURE [None]
  - INTERSTITIAL LUNG DISEASE [None]
  - RASH [None]
